FAERS Safety Report 21157352 (Version 2)
Quarter: 2022Q3

REPORT INFORMATION
  Report Type: Spontaneous
  Country: US (occurrence: US)
  Receive Date: 20220801
  Receipt Date: 20220819
  Transmission Date: 20221027
  Serious: No
  Sender: FDA-Public Use
  Company Number: US-PFIZER INC-202200845775

PATIENT
  Age: 71 Year
  Sex: Female
  Weight: 78 kg

DRUGS (35)
  1. PAXLOVID [Suspect]
     Active Substance: NIRMATRELVIR\RITONAVIR
     Indication: COVID-19 treatment
     Dosage: [PF-07321332 300 MG]/[RITONAVIR 100 MG]; 2X/DAY
     Route: 048
     Dates: start: 20220615, end: 20220617
  2. ALBENZA [Concomitant]
     Active Substance: ALBENDAZOLE
     Dosage: 2 DF, CYCLIC (2 TAB ONCE ON EMPTY STOMACH)
     Route: 048
     Dates: start: 20210218
  3. VENTOLIN HFA [Concomitant]
     Active Substance: ALBUTEROL SULFATE
     Indication: Dyspnoea
     Dosage: 2 DF, AS NEEDED (2 PUFFS EVERY 4 HR, PRN, USE WITH SPACER CHAMBER MINUTES BEFORE EXERCISE)
  4. VENTOLIN HFA [Concomitant]
     Active Substance: ALBUTEROL SULFATE
     Indication: Wheezing
  5. VENTOLIN HFA [Concomitant]
     Active Substance: ALBUTEROL SULFATE
     Indication: Cough
  6. AUGMENTIN [Concomitant]
     Active Substance: AMOXICILLIN\CLAVULANATE POTASSIUM
     Dosage: 1 DF, 3X/DAY
     Route: 048
  7. AUGMENTIN [Concomitant]
     Active Substance: AMOXICILLIN\CLAVULANATE POTASSIUM
     Dosage: 1 DF, 2X/DAY
     Route: 048
  8. ASPIRIN [Concomitant]
     Active Substance: ASPIRIN
     Dosage: 1 DF, DAILY
     Route: 048
  9. ATORVASTATIN [Concomitant]
     Active Substance: ATORVASTATIN
     Dosage: 1 DF, DAILY
     Route: 048
  10. AZITHROMYCIN [Concomitant]
     Active Substance: AZITHROMYCIN
     Indication: Chronic obstructive pulmonary disease
     Dosage: 500 MG, 1X/DAY
     Route: 048
  11. AZITHROMYCIN [Concomitant]
     Active Substance: AZITHROMYCIN
     Dosage: 1 DF, DAILY
     Route: 048
  12. AZITHROMYCIN [Concomitant]
     Active Substance: AZITHROMYCIN
     Dosage: 250 MG, 2X/DAY
     Route: 048
  13. TESSALON [Concomitant]
     Active Substance: BENZONATATE
     Indication: Cough
     Dosage: 100 MG, AS NEEDED (3 TIMES/DAY)
     Route: 048
  14. FLEXERIL [Concomitant]
     Active Substance: CYCLOBENZAPRINE HYDROCHLORIDE
     Indication: Myalgia
     Dosage: UNK, AS NEEDED (1 TAB 3 TIMES/DAY)
     Route: 048
  15. CYCLOBENZAPRINE [Concomitant]
     Active Substance: CYCLOBENZAPRINE
     Dosage: UNK, AS NEEDED (1-2 TAB 3 TIMES/DAY)
     Route: 048
  16. DEXAMETHASONE [Concomitant]
     Active Substance: DEXAMETHASONE
     Dosage: UNK
     Dates: start: 20211012
  17. DICYCLOMINE [Concomitant]
     Active Substance: DICYCLOMINE HYDROCHLORIDE
     Dosage: UNK, AS NEEDED (1-2 CAP Q4-6 HRS)
     Route: 048
  18. DICYCLOMINE [Concomitant]
     Active Substance: DICYCLOMINE HYDROCHLORIDE
     Dosage: UNK, AS NEEDED (1-2 CAP ORAL Q4-6HRS PRN)
     Route: 048
  19. DOXYCYCLINE HYCLATE [Concomitant]
     Active Substance: DOXYCYCLINE HYCLATE
     Dosage: 1 DF, 2X/DAY
     Route: 048
  20. DULOXETINE [Concomitant]
     Active Substance: DULOXETINE
     Dosage: 1 DF, DAILY
     Route: 048
     Dates: start: 20211012
  21. DULOXETINE [Concomitant]
     Active Substance: DULOXETINE
     Dosage: 1 DF, DAILY
     Route: 048
     Dates: start: 20220222
  22. NORCO [Concomitant]
     Active Substance: ACETAMINOPHEN\HYDROCODONE BITARTRATE
     Indication: Pain
     Dosage: UNK, AS NEEDED (1 TAB EVERY 6 HR)
     Route: 048
  23. PREDNISONE [Concomitant]
     Active Substance: PREDNISONE
     Dosage: 3 DF, DAILY
     Route: 048
  24. PREDNISONE [Concomitant]
     Active Substance: PREDNISONE
     Dosage: UNK
     Route: 048
  25. PREDNISONE [Concomitant]
     Active Substance: PREDNISONE
     Dosage: UNK (5 TABS DAY 1, 4 TABS DAY 2, 3 TABS DAY3, 2 TABS DAY 4, 1 TAB DAYS)
  26. PREDNISONE [Concomitant]
     Active Substance: PREDNISONE
     Dosage: (DAY 1: 6 BY MOUTH DAY 2: 5 BY MOUTH DAY 3: 4 DAY 4: 3 DAY 5: 2 DAY 6: 1 THEN STOP)
     Route: 048
  27. PREDNISONE [Concomitant]
     Active Substance: PREDNISONE
     Dosage: 2 DF, DAILY
     Route: 048
  28. PREDNISONE [Concomitant]
     Active Substance: PREDNISONE
     Dosage: 2 DF, DAILY
     Route: 048
  29. PREDNISONE [Concomitant]
     Active Substance: PREDNISONE
     Dosage: 1 DF, 2X/DAY
     Route: 048
     Dates: start: 20200311
  30. PREDNISONE [Concomitant]
     Active Substance: PREDNISONE
     Dosage: 1 DF, 2X/DAY
  31. SALMETEROL [Concomitant]
     Active Substance: SALMETEROL
     Dosage: UNK, 2X/DAY (1 EA)
     Route: 055
  32. STIOLTO RESPIMAT [Concomitant]
     Active Substance: OLODATEROL HYDROCHLORIDE\TIOTROPIUM BROMIDE MONOHYDRATE
     Dosage: 2 DF, 1X/DAY
     Route: 055
     Dates: start: 20220222
  33. SPIRIVA [Concomitant]
     Active Substance: TIOTROPIUM BROMIDE MONOHYDRATE
     Dosage: 1 DF, AS NEEDED (DAILY, WITH INHALATION DEVICE)
     Route: 055
  34. TRAMADOL [Concomitant]
     Active Substance: TRAMADOL
     Indication: Pain
     Dosage: 1 DF, AS NEEDED (EVERY 4 HOURS)
     Route: 048
     Dates: start: 20190411
  35. TRAMADOL [Concomitant]
     Active Substance: TRAMADOL
     Dosage: 1 DF EVERY 4 HOURS
     Route: 048
     Dates: start: 20200520

REACTIONS (4)
  - Nausea [Unknown]
  - Diarrhoea [Unknown]
  - Vomiting [Unknown]
  - Condition aggravated [Unknown]
